FAERS Safety Report 6467509-0 (Version None)
Quarter: 2009Q4

REPORT INFORMATION
  Report Type: 
  Country: None (occurrence: None)
  Receive Date: 20091202
  Receipt Date: 20091123
  Transmission Date: 20100525
  Serious: Yes (Other)
  Sender: FDA-Public Use
  Company Number: CHPA2009DE20348

PATIENT
  Sex: Female
  Weight: 52 kg

DRUGS (1)
  1. NICOTINELL TTS (NCH) [Suspect]
     Indication: SMOKING CESSATION THERAPY
     Dosage: 21 MG, QD
     Dates: start: 20090916, end: 20090916

REACTIONS (5)
  - ANXIETY [None]
  - CARDIAC DISCOMFORT [None]
  - CHILLS [None]
  - PALPITATIONS [None]
  - TREMOR [None]
